FAERS Safety Report 4443942-3 (Version None)
Quarter: 2004Q3

REPORT INFORMATION
  Report Type: 
  Country: None (occurrence: None)
  Receive Date: 20040729
  Receipt Date: 20030815
  Transmission Date: 20050211
  Serious: Yes (Hospitalization)
  Sender: FDA-Public Use
  Company Number: US-JNJFOC-20030801772

PATIENT
  Age: 37 Year
  Sex: Female

DRUGS (2)
  1. RISPERDAL [Suspect]
     Indication: PERSONALITY DISORDER
     Dosage: 0.25 MG, 2 IN 1 DAY, ORAL
     Route: 048
     Dates: start: 20010601, end: 20010701
  2. ZOLOFT [Concomitant]

REACTIONS (2)
  - TIC [None]
  - TRANSIENT ISCHAEMIC ATTACK [None]
